FAERS Safety Report 24650659 (Version 1)
Quarter: 2024Q4

REPORT INFORMATION
  Report Type: Spontaneous
  Country: US (occurrence: None)
  Receive Date: 20241122
  Receipt Date: 20241122
  Transmission Date: 20250114
  Serious: No
  Sender: UNICHEM
  Company Number: US-ARIS GLOBAL-UCM202401-000048

PATIENT
  Sex: Male

DRUGS (2)
  1. AMLODIPINE [Suspect]
     Active Substance: AMLODIPINE BESYLATE
     Indication: Hypertension
  2. AMLODIPINE [Suspect]
     Active Substance: AMLODIPINE BESYLATE
     Dates: end: 20240206

REACTIONS (6)
  - Headache [Unknown]
  - Blood pressure fluctuation [Unknown]
  - Feeling abnormal [Unknown]
  - Asthenia [Unknown]
  - Dizziness [Unknown]
  - Peripheral swelling [Unknown]
